FAERS Safety Report 4832005-0 (Version None)
Quarter: 2005Q4

REPORT INFORMATION
  Report Type: 
  Country: None (occurrence: None)
  Receive Date: 20051116
  Receipt Date: 20051107
  Transmission Date: 20060501
  Serious: Yes (Hospitalization)
  Sender: FDA-Public Use
  Company Number: GXKR2005GB01938

PATIENT
  Age: 62 Year
  Sex: Male

DRUGS (11)
  1. FUROSEMIDE [Suspect]
     Indication: CARDIAC FAILURE
     Dosage: 40 MG, QD, ORAL
     Route: 048
     Dates: start: 20050920, end: 20051017
  2. SPIRONOLACTONE [Suspect]
     Indication: CARDIAC FAILURE
     Dosage: 50 MG, QD, ORAL
     Route: 048
     Dates: start: 20050927, end: 20051011
  3. ALBUTEROL [Concomitant]
  4. ATROVENT (PRATROPIUM BROMIDE) [Concomitant]
  5. BECLOFORTE (BECLOMETASONE DIPROPIONATE) [Concomitant]
  6. VITAMIN B COMPLEX (CALCIUM PANTOTHENATE, NICOTINAMIDE, PYRIDOXINE HYDR [Concomitant]
  7. FOSAMAX [Concomitant]
  8. CALCICHEW D3 (CALCIUM CARBONATE, COLECALCIFEROL) [Concomitant]
  9. PREDNISONE [Concomitant]
  10. THIAMINE (THIAMINE) [Concomitant]
  11. OMEPRAZOLE [Concomitant]

REACTIONS (8)
  - BLOOD SODIUM INCREASED [None]
  - C-REACTIVE PROTEIN INCREASED [None]
  - DYSPNOEA [None]
  - LETHARGY [None]
  - PLATELET COUNT DECREASED [None]
  - PURPURA [None]
  - VASCULITIC RASH [None]
  - WHITE BLOOD CELL COUNT INCREASED [None]
